FAERS Safety Report 20034789 (Version 12)
Quarter: 2022Q1

REPORT INFORMATION
  Report Type: Report from Study
  Country: AR (occurrence: None)
  Receive Date: 20211104
  Receipt Date: 20220228
  Transmission Date: 20220423
  Serious: Yes (Hospitalization)
  Sender: FDA-Public Use
  Company Number: AR-Eisai Medical Research-EC-2021-101667

PATIENT
  Age: 66 Year
  Sex: Female
  Weight: 59.5 kg

DRUGS (14)
  1. LENVATINIB [Suspect]
     Active Substance: LENVATINIB
     Indication: Non-small cell lung cancer metastatic
     Route: 048
     Dates: start: 20210730, end: 20211012
  2. AMLODIPINE [Concomitant]
     Active Substance: AMLODIPINE BESYLATE
     Dates: start: 200101, end: 20211208
  3. CARVEDILOL [Concomitant]
     Active Substance: CARVEDILOL
     Dates: start: 200101
  4. PERINDOPRIL [Concomitant]
     Active Substance: PERINDOPRIL
     Dates: start: 200101
  5. RISPERIDONE [Concomitant]
     Active Substance: RISPERIDONE
     Dates: start: 200801, end: 20211208
  6. PANTOPRAZOLE [Concomitant]
     Active Substance: PANTOPRAZOLE
     Dates: start: 201001
  7. CLONAZEPAM [Concomitant]
     Active Substance: CLONAZEPAM
     Dates: start: 201101, end: 20211114
  8. METOCLOPRAMIDE [Concomitant]
     Active Substance: METOCLOPRAMIDE
     Dates: start: 20210730
  9. ACETAMINOPHEN [Concomitant]
     Active Substance: ACETAMINOPHEN
     Dates: start: 20210907, end: 20211012
  10. CODEINE [Concomitant]
     Active Substance: CODEINE
     Dates: start: 20210907, end: 20211012
  11. APREPITANT [Concomitant]
     Active Substance: APREPITANT
     Dates: start: 20210730, end: 20210928
  12. ONDANSETRON [Concomitant]
     Active Substance: ONDANSETRON
     Dates: start: 20210730, end: 20210928
  13. DEXAMETHASONE [Concomitant]
     Active Substance: DEXAMETHASONE
     Dates: start: 20210730, end: 20210928
  14. LEVOTHYROXINE SODIUM [Concomitant]
     Active Substance: LEVOTHYROXINE SODIUM
     Dates: start: 20210928

REACTIONS (3)
  - Gallbladder enlargement [Recovered/Resolved]
  - Sepsis [Recovered/Resolved]
  - Biliary sepsis [Recovered/Resolved]

NARRATIVE: CASE EVENT DATE: 20211010
